FAERS Safety Report 9580868 (Version 1)
Quarter: 2013Q4

REPORT INFORMATION
  Report Type: Spontaneous
  Country: US (occurrence: None)
  Receive Date: 20131001
  Receipt Date: 20131001
  Transmission Date: 20140711
  Serious: No
  Sender: FDA-Public Use
  Company Number: None

PATIENT
  Age: 66 Year
  Sex: Female
  Weight: 55.79 kg

DRUGS (1)
  1. PREDNISONE [Suspect]
     Indication: DRUG THERAPY
     Dosage: 3 PILLS
     Route: 048
     Dates: start: 20130616, end: 20130930

REACTIONS (3)
  - Psychotic disorder [None]
  - Nervousness [None]
  - Vision blurred [None]
